FAERS Safety Report 10851899 (Version 1)
Quarter: 2015Q1

REPORT INFORMATION
  Report Type: Spontaneous
  Country: US (occurrence: US)
  Receive Date: 20150222
  Receipt Date: 20150222
  Transmission Date: 20150721
  Serious: No
  Sender: FDA-Public Use
  Company Number: US-ALLERGAN-1422592US

PATIENT
  Sex: Female

DRUGS (3)
  1. BOTOX COSMETIC [Suspect]
     Active Substance: ONABOTULINUMTOXINA
     Indication: SKIN WRINKLING
     Dosage: 10 UNITS, RIGHT SIDE 5 UNITS, LEFT SIDE 5 UNITS
     Route: 030
     Dates: start: 20140921, end: 20140921
  2. BOTOX COSMETIC [Suspect]
     Active Substance: ONABOTULINUMTOXINA
     Indication: SKIN WRINKLING
     Dosage: 24 UNITS, 12 UINITS RIGHT SIDE, 12 UNITS LEFT SIDE
     Route: 030
     Dates: start: 20140921, end: 20140921
  3. BOTOX COSMETIC [Suspect]
     Active Substance: ONABOTULINUMTOXINA
     Indication: SKIN WRINKLING
     Dosage: 9 UNK, 5 UNITS UPPER LIP, 5 UNITS LOWER LIP
     Route: 030
     Dates: start: 20140921, end: 20140921

REACTIONS (2)
  - Drug ineffective [Unknown]
  - Off label use [Unknown]
